FAERS Safety Report 8331381-4 (Version None)
Quarter: 2012Q2

REPORT INFORMATION
  Report Type: 
  Country: None (occurrence: None)
  Receive Date: 20120502
  Receipt Date: 20120424
  Transmission Date: 20120825
  Serious: Yes (Other)
  Sender: FDA-Public Use
  Company Number: VE-ROCHE-1064798

PATIENT
  Sex: Female

DRUGS (3)
  1. GABAPENTIN [Concomitant]
  2. AULIN [Concomitant]
  3. XOLAIR [Suspect]
     Indication: ASTHMA
     Dates: start: 20100401, end: 20120401

REACTIONS (1)
  - HERPES ZOSTER [None]
